FAERS Safety Report 12400292 (Version 1)
Quarter: 2016Q2

REPORT INFORMATION
  Report Type: Spontaneous
  Country: US (occurrence: None)
  Receive Date: 20160524
  Receipt Date: 20160524
  Transmission Date: 20160815
  Serious: No
  Sender: FDA-Public Use
  Company Number: None

PATIENT
  Age: 83 Year
  Sex: Male

DRUGS (1)
  1. ESBRIET [Suspect]
     Active Substance: PIRFENIDONE
     Indication: PULMONARY FIBROSIS
     Dosage: 267 MG 3 CS TID ORAL
     Route: 048
     Dates: start: 20160405

REACTIONS (2)
  - Dysgeusia [None]
  - Decreased appetite [None]

NARRATIVE: CASE EVENT DATE: 20160523
